FAERS Safety Report 7644863-5 (Version None)
Quarter: 2011Q3

REPORT INFORMATION
  Report Type: 
  Country: None (occurrence: None)
  Receive Date: 20110729
  Receipt Date: 20110725
  Transmission Date: 20111222
  Serious: Yes (Hospitalization)
  Sender: FDA-Public Use
  Company Number: US-BAYER-200938764NA

PATIENT
  Sex: Female

DRUGS (5)
  1. YAZ [Suspect]
     Indication: CONTRACEPTION
     Route: 048
     Dates: start: 20071201, end: 20080101
  2. MOTRIN [Concomitant]
  3. YASMIN [Suspect]
     Indication: CONTRACEPTION
     Route: 048
     Dates: start: 20071201, end: 20080101
  4. MOXIFLOXACIN [Concomitant]
     Indication: PNEUMONIA
     Dosage: UNK
  5. ALBUTEROL SULFATE AUTOHALER [Concomitant]
     Indication: ASTHMA

REACTIONS (2)
  - PAIN [None]
  - PULMONARY EMBOLISM [None]
